FAERS Safety Report 15353070 (Version 5)
Quarter: 2019Q1

REPORT INFORMATION
  Report Type: Spontaneous
  Country: US (occurrence: US)
  Receive Date: 20180905
  Receipt Date: 20190218
  Transmission Date: 20190417
  Serious: No
  Sender: FDA-Public Use
  Company Number: US-PFIZER INC-2018357917

PATIENT
  Age: 52 Year
  Sex: Female

DRUGS (15)
  1. DOCETAXEL. [Suspect]
     Active Substance: DOCETAXEL
     Indication: METASTASES TO KIDNEY
  2. DOCETAXEL SANDOZ [Suspect]
     Active Substance: DOCETAXEL
     Indication: BREAST CANCER METASTATIC
     Dosage: 160 MG, CYCLIC (31 CYCLES, EVERY THREE WEEKS)
     Dates: end: 20131118
  3. DOCETAXEL. [Suspect]
     Active Substance: DOCETAXEL
     Indication: BREAST CANCER METASTATIC
     Dosage: 160 MG, CYCLIC (31 CYCLES, EVERY THREE WEEKS)
     Dates: end: 20131118
  4. DOCETAXEL. [Suspect]
     Active Substance: DOCETAXEL
     Dosage: UNK
     Dates: end: 20131118
  5. DOCETAXEL (SANOFI-AVENTIS) [Suspect]
     Active Substance: DOCETAXEL
     Indication: METASTASES TO BONE
  6. DOCETAXEL SANDOZ [Suspect]
     Active Substance: DOCETAXEL
     Indication: METASTASES TO BONE
  7. DOCETAXEL (SANOFI-AVENTIS) [Suspect]
     Active Substance: DOCETAXEL
     Indication: BREAST CANCER METASTATIC
     Dosage: 160 MG, CYCLIC (31 CYCLES, EVERY THREE WEEKS)
     Dates: end: 20131118
  8. DOCETAXEL SANDOZ [Suspect]
     Active Substance: DOCETAXEL
     Indication: METASTASES TO KIDNEY
  9. DOCETAXEL. [Suspect]
     Active Substance: DOCETAXEL
     Indication: METASTASES TO BONE
  10. DOCETAXEL (SANOFI-AVENTIS) [Suspect]
     Active Substance: DOCETAXEL
     Indication: METASTASES TO KIDNEY
  11. TAXOTERE [Suspect]
     Active Substance: DOCETAXEL
     Indication: METASTASES TO KIDNEY
  12. TAXOTERE [Suspect]
     Active Substance: DOCETAXEL
     Indication: METASTASES TO BONE
  13. ZOMETA [Concomitant]
     Active Substance: ZOLEDRONIC ACID
     Indication: CHEMOTHERAPY
     Dosage: UNK
  14. TAXOTERE [Suspect]
     Active Substance: DOCETAXEL
     Indication: BREAST CANCER METASTATIC
     Dosage: 160 MG, CYCLIC (31 CYCLES, EVERY THREE WEEKS)
     Dates: end: 20131118
  15. FASLODEX [Concomitant]
     Active Substance: FULVESTRANT
     Indication: CHEMOTHERAPY
     Dosage: UNK

REACTIONS (7)
  - Hair texture abnormal [Not Recovered/Not Resolved]
  - Hair disorder [Not Recovered/Not Resolved]
  - Alopecia [Not Recovered/Not Resolved]
  - Anxiety [Not Recovered/Not Resolved]
  - Post-traumatic stress disorder [Not Recovered/Not Resolved]
  - Hair colour changes [Not Recovered/Not Resolved]
  - Madarosis [Not Recovered/Not Resolved]

NARRATIVE: CASE EVENT DATE: 201201
